FAERS Safety Report 25335773 (Version 1)
Quarter: 2025Q2

REPORT INFORMATION
  Report Type: Spontaneous
  Country: HU (occurrence: HU)
  Receive Date: 20250520
  Receipt Date: 20250520
  Transmission Date: 20250716
  Serious: Yes (Life-Threatening)
  Sender: ROCHE
  Company Number: HU-ROCHE-10000282111

PATIENT
  Sex: Female

DRUGS (1)
  1. CELLCEPT [Suspect]
     Active Substance: MYCOPHENOLATE MOFETIL
     Indication: Product used for unknown indication
     Route: 065

REACTIONS (6)
  - Small intestinal obstruction [Unknown]
  - Intestinal fistula [Unknown]
  - Ileostomy [Unknown]
  - Adrenocortical insufficiency acute [Unknown]
  - Systemic lupus erythematosus [Unknown]
  - Addison^s disease [Unknown]
